FAERS Safety Report 23571088 (Version 1)
Quarter: 2024Q1

REPORT INFORMATION
  Report Type: Spontaneous
  Country: IT (occurrence: IT)
  Receive Date: 20240227
  Receipt Date: 20240227
  Transmission Date: 20240410
  Serious: Yes (Other)
  Sender: FDA-Public Use
  Company Number: IT-SUN PHARMACEUTICAL INDUSTRIES LTD-2024R1-433121

PATIENT
  Age: 50 Year
  Sex: Male

DRUGS (3)
  1. SODIUM NITROPRUSSIDE [Suspect]
     Active Substance: SODIUM NITROPRUSSIDE
     Indication: Pulmonary hypertension
     Dosage: 2.47, ?G/KG/MIN
     Route: 065
  2. SODIUM NITROPRUSSIDE [Suspect]
     Active Substance: SODIUM NITROPRUSSIDE
     Dosage: 1.1, ?G/KG/MIN
     Route: 065
  3. EPINEPHRINE [Concomitant]
     Active Substance: EPINEPHRINE
     Indication: Pulmonary hypertension
     Dosage: 0.05, ?G/KG/MIN
     Route: 065

REACTIONS (2)
  - Toxicity to various agents [Unknown]
  - Arrhythmia [Unknown]
